FAERS Safety Report 9000085 (Version 3)
Quarter: 2013Q4

REPORT INFORMATION
  Report Type: Report from Study
  Country: JP (occurrence: JP)
  Receive Date: 20130102
  Receipt Date: 20131114
  Transmission Date: 20140711
  Serious: Yes (Hospitalization)
  Sender: FDA-Public Use
  Company Number: JP-VERTEX PHARMACEUTICALS INC.-AE-2012-005502

PATIENT
  Age: 51 Year
  Sex: Female

DRUGS (5)
  1. VX-950 (TELAPREVIR) [Suspect]
     Indication: CHRONIC HEPATITIS C
     Dosage: 1500 MG, QD
     Route: 048
     Dates: start: 20120404, end: 20120410
  2. RIBAVIRIN [Concomitant]
     Dosage: 400 MG, QD
     Route: 048
     Dates: start: 20120404, end: 20120410
  3. PEGINTRON [Concomitant]
     Dosage: 1.0 ?G/KG, QW
     Route: 058
     Dates: start: 20120404, end: 20120410
  4. URSO [Concomitant]
     Dosage: 900 MG, QD
     Route: 048
     Dates: start: 20120411
  5. GLYCYRON [Concomitant]
     Dosage: 6 DF, QD
     Route: 048
     Dates: start: 20120411

REACTIONS (1)
  - Breast cancer [Not Recovered/Not Resolved]
